FAERS Safety Report 6996368-2 (Version None)
Quarter: 2010Q3

REPORT INFORMATION
  Report Type: 
  Country: None (occurrence: None)
  Receive Date: 20100918
  Receipt Date: 20090217
  Transmission Date: 20110219
  Serious: No
  Sender: FDA-Public Use
  Company Number: US-WYE-H08258609

PATIENT
  Sex: Female

DRUGS (2)
  1. EFFEXOR XR [Suspect]
     Dosage: ^1/2 CAPSULE IN APPLESAUCE^
     Route: 048
     Dates: start: 20050101, end: 20090101
  2. EFFEXOR XR [Suspect]
     Route: 048
     Dates: start: 20090101

REACTIONS (5)
  - ABDOMINAL DISCOMFORT [None]
  - ABDOMINAL PAIN UPPER [None]
  - FEELING HOT [None]
  - NERVOUSNESS [None]
  - RETCHING [None]
